FAERS Safety Report 9540402 (Version 3)
Quarter: 2015Q1

REPORT INFORMATION
  Report Type: Spontaneous
  Country: US (occurrence: US)
  Receive Date: 20130920
  Receipt Date: 20150211
  Transmission Date: 20150721
  Serious: Yes (Hospitalization, Other)
  Sender: FDA-Public Use
  Company Number: US-GLAXOSMITHKLINE-A1041743A

PATIENT
  Age: 58 Year
  Sex: Female

DRUGS (11)
  1. RANITIDINE [Concomitant]
     Active Substance: RANITIDINE\RANITIDINE HYDROCHLORIDE
  2. ASPIRIN. [Suspect]
     Active Substance: ASPIRIN
     Indication: MIGRAINE
     Route: 048
  3. LISINOPRIL. [Concomitant]
     Active Substance: LISINOPRIL
  4. IRON [Concomitant]
     Active Substance: IRON
  5. IMITREX [Suspect]
     Active Substance: SUMATRIPTAN\SUMATRIPTAN SUCCINATE
     Indication: MIGRAINE
     Dosage: 1 PUFF THEN ANOTHER PUFF IF NEEDED AFTER TAKING 4 ASPIRIN
     Route: 045
     Dates: start: 20130909
  6. HYDROXYZINE [Concomitant]
     Active Substance: HYDROXYZINE\HYDROXYZINE HYDROCHLORIDE
  7. COMPAZINE [Concomitant]
     Active Substance: PROCHLORPERAZINE MALEATE
  8. CITALOPRAM [Concomitant]
     Active Substance: CITALOPRAM HYDROBROMIDE
  9. IMITREX [Suspect]
     Active Substance: SUMATRIPTAN\SUMATRIPTAN SUCCINATE
     Indication: MIGRAINE
     Dosage: 10 MG TABLET TWICE DAILY
     Route: 048
     Dates: start: 201307
  10. PRILOSEC [Concomitant]
     Active Substance: OMEPRAZOLE MAGNESIUM
  11. IMITREX [Suspect]
     Active Substance: SUMATRIPTAN\SUMATRIPTAN SUCCINATE
     Dosage: 5 MG, U
     Dates: start: 20130805

REACTIONS (9)
  - Overdose [Recovered/Resolved]
  - Therapeutic procedure [Unknown]
  - Ulcer [Unknown]
  - Drug ineffective [Recovered/Resolved]
  - Therapeutic response decreased [Unknown]
  - Labelled drug-disease interaction medication error [Not Recovered/Not Resolved]
  - Seizure [Recovered/Resolved]
  - Blood pressure increased [Recovered/Resolved]
  - Gastric disorder [Not Recovered/Not Resolved]

NARRATIVE: CASE EVENT DATE: 201307
